FAERS Safety Report 13745059 (Version 1)
Quarter: 2017Q3

REPORT INFORMATION
  Report Type: Spontaneous
  Country: US (occurrence: US)
  Receive Date: 20170711
  Receipt Date: 20170711
  Transmission Date: 20171127
  Serious: Yes (Life-Threatening, Disabling, Other)
  Sender: FDA-Public Use
  Company Number: None

PATIENT
  Age: 42 Year
  Sex: Male
  Weight: 171 kg

DRUGS (7)
  1. PRILOSEC [Concomitant]
     Active Substance: OMEPRAZOLE MAGNESIUM
  2. LISINIPRO [Concomitant]
  3. L-THEANINE [Concomitant]
     Active Substance: DIETARY SUPPLEMENT
  4. KLONOPIN [Suspect]
     Active Substance: CLONAZEPAM
     Indication: ANXIETY
     Dates: start: 20011010, end: 20170711
  5. VITAMIN B12 [Concomitant]
     Active Substance: CYANOCOBALAMIN
  6. VALIUM [Concomitant]
     Active Substance: DIAZEPAM
  7. PROPRANOLOL [Concomitant]
     Active Substance: PROPRANOLOL HYDROCHLORIDE

REACTIONS (4)
  - Suicidal ideation [None]
  - Neuralgia [None]
  - Withdrawal syndrome [None]
  - Pain [None]
